FAERS Safety Report 5669210-X (Version None)
Quarter: 2008Q1

REPORT INFORMATION
  Report Type: 
  Country: None (occurrence: None)
  Receive Date: 20080317
  Receipt Date: 20080313
  Transmission Date: 20080703
  Serious: Yes (Hospitalization)
  Sender: FDA-Public Use
  Company Number: DE-BRISTOL-MYERS SQUIBB COMPANY-14095939

PATIENT
  Age: 19 Year
  Sex: Male

DRUGS (2)
  1. ABILIFY [Suspect]
     Indication: PSYCHOTIC DISORDER
     Dosage: DOSE INCREASED TO 15MG/DAY IN AN UNKNOWN DATE
     Route: 048
     Dates: start: 20080214
  2. LAMOTRIGINE [Concomitant]
     Route: 048
     Dates: start: 20080107

REACTIONS (2)
  - EPISTAXIS [None]
  - HICCUPS [None]
